FAERS Safety Report 7417645-7 (Version None)
Quarter: 2011Q2

REPORT INFORMATION
  Report Type: 
  Country: None (occurrence: None)
  Receive Date: 20110415
  Receipt Date: 20110412
  Transmission Date: 20111010
  Serious: Yes (Other)
  Sender: FDA-Public Use
  Company Number: BR-PFIZER INC-2011027720

PATIENT
  Age: 36 Year
  Sex: Female
  Weight: 64 kg

DRUGS (3)
  1. CHAMPIX [Suspect]
     Dosage: 0.5 MG, 2X/DAY (EVERY 12 HOURS)
     Route: 048
     Dates: start: 20110101
  2. CHAMPIX [Suspect]
     Dosage: 1 MG, 2X/DAY
     Route: 048
  3. CHAMPIX [Suspect]
     Indication: TOBACCO USER
     Dosage: UNK
     Route: 048
     Dates: start: 20110110, end: 20110101

REACTIONS (2)
  - PALPITATIONS [None]
  - SUFFOCATION FEELING [None]
